FAERS Safety Report 7251066-5 (Version None)
Quarter: 2011Q1

REPORT INFORMATION
  Report Type: 
  Country: None (occurrence: None)
  Receive Date: 20110128
  Receipt Date: 20110125
  Transmission Date: 20110831
  Serious: Yes (Life-Threatening, Hospitalization)
  Sender: FDA-Public Use
  Company Number: US-BAYER-2011-009067

PATIENT
  Sex: Female

DRUGS (3)
  1. YASMIN [Suspect]
     Dosage: UNK
  2. YAZ [Suspect]
     Dosage: UNK
  3. OCELLA [Suspect]
     Dosage: UNK

REACTIONS (2)
  - PAIN [None]
  - GALLBLADDER DISORDER [None]
